FAERS Safety Report 8407900-6 (Version None)
Quarter: 2012Q2

REPORT INFORMATION
  Report Type: 
  Country: None (occurrence: None)
  Receive Date: 20120604
  Receipt Date: 20120530
  Transmission Date: 20120825
  Serious: No
  Sender: FDA-Public Use
  Company Number: US-BAYER-2012-054909

PATIENT
  Sex: Female

DRUGS (6)
  1. ALEVE (CAPLET) [Suspect]
     Dosage: 1 DF, BID
     Route: 048
     Dates: start: 20120528, end: 20120529
  2. FISH OIL [Concomitant]
  3. CALCIUM [Concomitant]
  4. FOLIC ACID [Concomitant]
  5. VITAMIN B COMPLEX CAP [Concomitant]
  6. COENZYME Q10 [Concomitant]

REACTIONS (1)
  - INITIAL INSOMNIA [None]
